FAERS Safety Report 6726372-0 (Version None)
Quarter: 2010Q2

REPORT INFORMATION
  Report Type: 
  Country: None (occurrence: None)
  Receive Date: 20100514
  Receipt Date: 20100510
  Transmission Date: 20101027
  Serious: Yes (Death, Other)
  Sender: FDA-Public Use
  Company Number: A0859498A

PATIENT
  Age: 77 Year
  Sex: Female

DRUGS (2)
  1. PROMACTA [Suspect]
     Indication: IDIOPATHIC THROMBOCYTOPENIC PURPURA
     Dosage: 50MG PER DAY
     Route: 048
     Dates: start: 20091130, end: 20100118
  2. RITUXIMAB [Concomitant]
     Indication: IDIOPATHIC THROMBOCYTOPENIC PURPURA
     Dates: start: 20091006

REACTIONS (4)
  - BLOOD BILIRUBIN INCREASED [None]
  - DEATH [None]
  - DRUG INEFFECTIVE [None]
  - MOUTH HAEMORRHAGE [None]
